FAERS Safety Report 8027779-4 (Version None)
Quarter: 2011Q4

REPORT INFORMATION
  Report Type: 
  Country: None (occurrence: None)
  Receive Date: 20111130
  Receipt Date: 20110705
  Transmission Date: 20120403
  Serious: Yes (Hospitalization, Other)
  Sender: FDA-Public Use
  Company Number: US201004000698

PATIENT
  Age: 57 Year
  Sex: Female
  Weight: 83.9 kg

DRUGS (6)
  1. METFORMIN HCL [Concomitant]
  2. BYETTA [Suspect]
     Dates: start: 20060401, end: 20080401
  3. GABAPENTIN [Concomitant]
  4. EXENATIDE, DISPOSABLE DEVICE (EXENATIDE PEN ) PEN,DISPOSABLE [Concomitant]
  5. CRESTOR [Concomitant]
  6. ACTOS [Concomitant]

REACTIONS (1)
  - PANCREATITIS [None]
